FAERS Safety Report 14744001 (Version 1)
Quarter: 2018Q2

REPORT INFORMATION
  Report Type: Spontaneous
  Country: IT (occurrence: IT)
  Receive Date: 20180411
  Receipt Date: 20180411
  Transmission Date: 20180711
  Serious: Yes (Death, Other)
  Sender: FDA-Public Use
  Company Number: IT-CIPLA LTD.-2018IT14692

PATIENT

DRUGS (3)
  1. AMOXYCILLIN/CLAVULANIC ACID [Suspect]
     Active Substance: AMOXICILLIN\CLAVULANIC ACID
     Indication: OSTEONECROSIS OF JAW
     Dosage: 2 G, PER DAY, DURING TWO TIMES 2 WEEKS WITH 1 WEEK BETWEEN EACH 2-WEEK SEQUENCE
     Route: 065
  2. ZOLEDRONIC ACID [Suspect]
     Active Substance: ZOLEDRONIC ACID
     Indication: PLASMA CELL MYELOMA
     Dosage: UNK
     Route: 065
  3. METRONIDAZOLE. [Suspect]
     Active Substance: METRONIDAZOLE
     Indication: OSTEONECROSIS OF JAW
     Dosage: 1 G, PER DAY, DURING TWO TIMES 2 WEEKS WITH 1 WEEK BETWEEN EACH 2-WEEK SEQUENCE
     Route: 065

REACTIONS (3)
  - Osteonecrosis of jaw [Recovered/Resolved]
  - Death [Fatal]
  - Therapy non-responder [Unknown]
